FAERS Safety Report 20588707 (Version 5)
Quarter: 2022Q2

REPORT INFORMATION
  Report Type: Spontaneous
  Country: FR (occurrence: FR)
  Receive Date: 20220314
  Receipt Date: 20220519
  Transmission Date: 20220721
  Serious: Yes (Hospitalization, Other)
  Sender: FDA-Public Use
  Company Number: FR-ORGANON-O2203FRA000533

PATIENT
  Age: 3 Year
  Sex: Male
  Weight: 17 kg

DRUGS (1)
  1. BETAMETHASONE [Suspect]
     Active Substance: BETAMETHASONE
     Dosage: POSOLOGY: 180 DROPS PER DAY, IN THE MORNING, FOR 5 DAYS
     Route: 048
     Dates: start: 20220227

REACTIONS (9)
  - Chemical poisoning [Recovering/Resolving]
  - Mydriasis [Recovering/Resolving]
  - Somnolence [Recovered/Resolved]
  - Decreased appetite [Recovering/Resolving]
  - Fatigue [Recovered/Resolved]
  - Product dispensing issue [Unknown]
  - Product odour abnormal [Unknown]
  - Physical product label issue [Unknown]
  - Product use issue [Unknown]

NARRATIVE: CASE EVENT DATE: 20220227
